FAERS Safety Report 4788745-5 (Version None)
Quarter: 2005Q4

REPORT INFORMATION
  Report Type: 
  Country: None (occurrence: None)
  Receive Date: 20051003
  Receipt Date: 20041223
  Transmission Date: 20060501
  Serious: Yes (Hospitalization)
  Sender: FDA-Public Use
  Company Number: US-JNJFOC-20040909744

PATIENT
  Age: 14 Year
  Sex: Female
  Weight: 48.0813 kg

DRUGS (2)
  1. CONCERTA [Suspect]
     Indication: ATTENTION DEFICIT/HYPERACTIVITY DISORDER
     Dosage: 36 MG, 2 IN 1 DAY, ORAL;  468 MG, 1 IN 1 DAY, ORAL
     Route: 048
     Dates: start: 20040914, end: 20040928
  2. CONCERTA [Suspect]
     Indication: ATTENTION DEFICIT/HYPERACTIVITY DISORDER
     Dosage: 36 MG, 2 IN 1 DAY, ORAL;  468 MG, 1 IN 1 DAY, ORAL
     Route: 048
     Dates: start: 20040928, end: 20040928

REACTIONS (15)
  - ACCIDENTAL OVERDOSE [None]
  - AGITATION [None]
  - BLOOD BILIRUBIN INCREASED [None]
  - BRUXISM [None]
  - CONFUSIONAL STATE [None]
  - FALL [None]
  - HALLUCINATION [None]
  - IRRITABILITY [None]
  - JOINT DISLOCATION [None]
  - JOINT INJURY [None]
  - MENTAL STATUS CHANGES [None]
  - SOMNOLENCE [None]
  - THERAPEUTIC AGENT TOXICITY [None]
  - TIC [None]
  - VOMITING [None]
